FAERS Safety Report 9587263 (Version 1)
Quarter: 2013Q4

REPORT INFORMATION
  Report Type: Spontaneous
  Country: US (occurrence: US)
  Receive Date: 20131003
  Receipt Date: 20131003
  Transmission Date: 20140711
  Serious: No
  Sender: FDA-Public Use
  Company Number: US-009507513-1310USA000493

PATIENT
  Age: 47 Year
  Sex: Female

DRUGS (4)
  1. CLARITIN LIQUIGELS [Suspect]
     Indication: RHINORRHOEA
     Dosage: 10 MG, ONCE
     Route: 048
  2. CLARITIN LIQUIGELS [Suspect]
     Indication: NASAL DISCOMFORT
  3. CLARITIN LIQUIGELS [Suspect]
     Indication: THROAT IRRITATION
  4. CLARITIN LIQUIGELS [Suspect]
     Indication: EAR PRURITUS

REACTIONS (1)
  - Drug effect decreased [Unknown]
